FAERS Safety Report 7042634-4 (Version None)
Quarter: 2010Q4

REPORT INFORMATION
  Report Type: 
  Country: None (occurrence: None)
  Receive Date: 20101007
  Receipt Date: 20100927
  Transmission Date: 20110411
  Serious: Yes (Hospitalization, Other)
  Sender: FDA-Public Use
  Company Number: 2010AC000516

PATIENT
  Age: 86 Year
  Sex: Female

DRUGS (17)
  1. DIGOXIN [Suspect]
     Dosage: 0.250 MG; QD; PO
     Route: 048
     Dates: start: 20080201
  2. DIGOXIN [Suspect]
     Dosage: 0.125 MG; QD; PO
     Route: 048
     Dates: start: 20071101
  3. ZESTRIL [Concomitant]
  4. TOPROL-XL [Concomitant]
  5. MEVACOR [Concomitant]
  6. COUMADIN [Concomitant]
  7. CALCIUM [Concomitant]
  8. FOSAMAX [Concomitant]
  9. HYDROCHLOROTHIAZIDE [Concomitant]
  10. LASIX [Concomitant]
  11. IMDUR [Concomitant]
  12. LEVAQUIN [Concomitant]
  13. ALLOPURINOL [Concomitant]
  14. VITAMIN K TAB [Concomitant]
  15. MULTI-VITAMIN [Concomitant]
  16. GLUCOSAMINE [Concomitant]
  17. METOPROLOL [Concomitant]

REACTIONS (17)
  - ASTHENIA [None]
  - ATRIAL FIBRILLATION [None]
  - BRADYCARDIA [None]
  - BUNDLE BRANCH BLOCK RIGHT [None]
  - CARDIAC FAILURE CONGESTIVE [None]
  - CAROTID ARTERY STENOSIS [None]
  - CHEST PAIN [None]
  - DIZZINESS [None]
  - ELECTROCARDIOGRAM ST SEGMENT DEPRESSION [None]
  - ELECTROCARDIOGRAM ST-T SEGMENT ABNORMAL [None]
  - ELECTROCARDIOGRAM T WAVE BIPHASIC [None]
  - EPISTAXIS [None]
  - ISCHAEMIA [None]
  - MYOCARDIAL INFARCTION [None]
  - RENAL FAILURE ACUTE [None]
  - THERAPEUTIC AGENT TOXICITY [None]
  - VENTRICULAR EXTRASYSTOLES [None]
